FAERS Safety Report 14792808 (Version 1)
Quarter: 2018Q2

REPORT INFORMATION
  Report Type: Spontaneous
  Country: US (occurrence: US)
  Receive Date: 20180420
  Receipt Date: 20180420
  Transmission Date: 20180711
  Serious: Yes (Disabling)
  Sender: FDA-Public Use
  Company Number: None

PATIENT
  Age: 55 Year
  Sex: Male
  Weight: 67.05 kg

DRUGS (4)
  1. MULTI VITAMINS [Concomitant]
     Active Substance: VITAMINS
  2. FLEXARIL [Concomitant]
  3. MAGNESIUM [Concomitant]
     Active Substance: MAGNESIUM
  4. CIPROFLOXACIN. [Suspect]
     Active Substance: CIPROFLOXACIN
     Indication: PROSTATE INFECTION
     Dosage: ?          QUANTITY:28 TABLET(S);?
     Route: 048
     Dates: start: 20170615, end: 20170628

REACTIONS (7)
  - Nervous system disorder [None]
  - Paraesthesia [None]
  - Tongue discomfort [None]
  - Arthralgia [None]
  - Burning feet syndrome [None]
  - Tendon disorder [None]
  - Back pain [None]

NARRATIVE: CASE EVENT DATE: 20170628
